FAERS Safety Report 20833858 (Version 1)
Quarter: 2022Q2

REPORT INFORMATION
  Report Type: Spontaneous
  Country: NL (occurrence: NL)
  Receive Date: 20220516
  Receipt Date: 20220516
  Transmission Date: 20220721
  Serious: Yes (Hospitalization)
  Sender: FDA-Public Use
  Company Number: NL-ROCHE-3083025

PATIENT
  Age: 70 Year
  Sex: Male

DRUGS (4)
  1. CARBOPLATIN [Suspect]
     Active Substance: CARBOPLATIN
     Indication: Non-small cell lung cancer
     Dosage: 75 MG/M2, EVERY 3 WEEKS (NUMBER OF CYCLES: 2 OVER APPROXIMATELY 15-30 MIN)
     Route: 042
     Dates: start: 20220318, end: 20220408
  2. BEVACIZUMAB [Suspect]
     Active Substance: BEVACIZUMAB
     Indication: Non-small cell lung cancer
     Dosage: 15 MG/KG (NUMBER OF CYCLES: 2)
     Route: 042
     Dates: start: 20220318, end: 20220408
  3. PACLITAXEL [Suspect]
     Active Substance: PACLITAXEL
     Indication: Non-small cell lung cancer
     Dosage: 175 MG/M2 (NUMBER OF CYCLES: 2 OVER 3 HOURS)
     Route: 042
     Dates: start: 20220318, end: 20220408
  4. ATEZOLIZUMAB [Suspect]
     Active Substance: ATEZOLIZUMAB
     Indication: Non-small cell lung cancer
     Dosage: 1200 MG
     Route: 041
     Dates: start: 20220318, end: 20220408

REACTIONS (2)
  - Pyrexia [Not Recovered/Not Resolved]
  - Off label use [Unknown]

NARRATIVE: CASE EVENT DATE: 20220318
